FAERS Safety Report 5764579-X (Version None)
Quarter: 2008Q2

REPORT INFORMATION
  Report Type: 
  Country: None (occurrence: None)
  Receive Date: 20080604
  Receipt Date: 20080522
  Transmission Date: 20081010
  Serious: Yes (Other)
  Sender: FDA-Public Use
  Company Number: 2008S1007552

PATIENT
  Age: 39 Year
  Sex: Female
  Weight: 53.5244 kg

DRUGS (5)
  1. FENTANYL [Suspect]
     Indication: CANCER PAIN
     Dosage: 75 UG;EVERY HOUR;TRANSDERMAL
     Route: 062
     Dates: start: 20080426
  2. WARFARIN SODIUM [Concomitant]
  3. VITAMIN CAP [Concomitant]
  4. HERCEPTIN [Concomitant]
  5. ZOMETA [Concomitant]

REACTIONS (5)
  - DISCOMFORT [None]
  - DRUG INEFFECTIVE [None]
  - PAIN [None]
  - THERAPEUTIC RESPONSE UNEXPECTED WITH DRUG SUBSTITUTION [None]
  - VOMITING [None]
